FAERS Safety Report 15693491 (Version 1)
Quarter: 2018Q4

REPORT INFORMATION
  Report Type: Spontaneous
  Country: RU (occurrence: RU)
  Receive Date: 20181206
  Receipt Date: 20181206
  Transmission Date: 20190205
  Serious: Yes (Other)
  Sender: FDA-Public Use
  Company Number: RU-ROCHE-2224267

PATIENT
  Age: 9 Year
  Sex: Male
  Weight: 40 kg

DRUGS (1)
  1. TAMIFLU [Suspect]
     Active Substance: OSELTAMIVIR PHOSPHATE
     Indication: INFLUENZA
     Dosage: PERORAL, 1.5 DAYS
     Route: 048

REACTIONS (2)
  - Diarrhoea [Recovering/Resolving]
  - Vomiting [Recovering/Resolving]
